FAERS Safety Report 5952086-0 (Version None)
Quarter: 2008Q4

REPORT INFORMATION
  Report Type: 
  Country: None (occurrence: None)
  Receive Date: 20081113
  Receipt Date: 20080320
  Transmission Date: 20090506
  Serious: No
  Sender: FDA-Public Use
  Company Number: A0716726A

PATIENT
  Sex: Female

DRUGS (5)
  1. CARVEDILOL [Suspect]
     Indication: DRUG USE FOR UNKNOWN INDICATION
     Route: 048
     Dates: start: 20080301
  2. UNKNOWN MEDICATION [Concomitant]
  3. ACTOS [Concomitant]
  4. CLONIDINE [Concomitant]
  5. AMLODIPINE [Concomitant]

REACTIONS (1)
  - PHOTOPHOBIA [None]
